FAERS Safety Report 5736285-9 (Version None)
Quarter: 2008Q2

REPORT INFORMATION
  Report Type: 
  Country: None (occurrence: None)
  Receive Date: 20080508
  Receipt Date: 20080422
  Transmission Date: 20081010
  Serious: Yes (Hospitalization)
  Sender: FDA-Public Use
  Company Number: S08-FRA-01660-01

PATIENT
  Age: 60 Year
  Sex: Male

DRUGS (10)
  1. ESCITALOPRAM [Suspect]
     Indication: MAJOR DEPRESSION
     Dates: start: 20080120, end: 20080120
  2. ESCITALOPRAM [Suspect]
     Indication: MAJOR DEPRESSION
  3. NOZINAN (LEVOMEPROMAZINE) [Suspect]
     Indication: MAJOR DEPRESSION
     Dates: start: 20080120, end: 20080120
  4. NOZINAN (LEVOMEPROMAZINE) [Suspect]
     Indication: MAJOR DEPRESSION
  5. MEPRONIZINE [Suspect]
     Indication: MAJOR DEPRESSION
     Dates: start: 20080120, end: 20080120
  6. MEPRONIZINE [Suspect]
     Indication: MAJOR DEPRESSION
  7. IMOVANE (ZOPICLONE) [Suspect]
     Indication: INSOMNIA
     Dates: start: 20080120, end: 20080120
  8. IMOVANE (ZOPICLONE) [Suspect]
     Indication: INSOMNIA
  9. OXAZEPAM [Suspect]
     Indication: ANXIOLYTIC THERAPY
     Dates: start: 20080120, end: 20080120
  10. OXAZEPAM [Suspect]
     Indication: ANXIOLYTIC THERAPY

REACTIONS (5)
  - COMA [None]
  - MULTIPLE DRUG OVERDOSE INTENTIONAL [None]
  - PNEUMONIA ASPIRATION [None]
  - SEPTIC SHOCK [None]
  - SEROTONIN SYNDROME [None]
